FAERS Safety Report 14410475 (Version 1)
Quarter: 2018Q1

REPORT INFORMATION
  Report Type: Spontaneous
  Country: US (occurrence: US)
  Receive Date: 20180116
  Receipt Date: 20180116
  Transmission Date: 20180509
  Serious: Yes (Death)
  Sender: FDA-Public Use
  Company Number: None

PATIENT
  Age: 63 Year
  Sex: Male

DRUGS (1)
  1. AFINITOR [Suspect]
     Active Substance: EVEROLIMUS
     Indication: ILL-DEFINED DISORDER
     Route: 048
     Dates: start: 20171223, end: 20180115

REACTIONS (1)
  - Disease progression [None]

NARRATIVE: CASE EVENT DATE: 20180114
